FAERS Safety Report 21810806 (Version 2)
Quarter: 2023Q1

REPORT INFORMATION
  Report Type: Report from Study
  Country: US (occurrence: US)
  Receive Date: 20230103
  Receipt Date: 20230203
  Transmission Date: 20230417
  Serious: No
  Sender: FDA-Public Use
  Company Number: US-ABBVIE-4251962

PATIENT
  Sex: Male

DRUGS (1)
  1. SKYRIZI [Suspect]
     Active Substance: RISANKIZUMAB-RZAA
     Indication: Product used for unknown indication
     Route: 058

REACTIONS (5)
  - Nasopharyngitis [Recovering/Resolving]
  - Facial pain [Unknown]
  - Sinus disorder [Recovering/Resolving]
  - Nasal discomfort [Not Recovered/Not Resolved]
  - Paranasal sinus discomfort [Unknown]
